FAERS Safety Report 19311000 (Version 6)
Quarter: 2022Q2

REPORT INFORMATION
  Report Type: Report from Study
  Country: US (occurrence: US)
  Receive Date: 20210526
  Receipt Date: 20220408
  Transmission Date: 20220721
  Serious: Yes (Other)
  Sender: FDA-Public Use
  Company Number: US-ABBVIE-21K-163-3921757-00

PATIENT
  Age: 53 Year
  Sex: Female
  Weight: 122.58 kg

DRUGS (12)
  1. HUMIRA [Suspect]
     Active Substance: ADALIMUMAB
     Indication: Rheumatoid arthritis
     Dosage: CF
     Route: 058
  2. HUMIRA [Suspect]
     Active Substance: ADALIMUMAB
     Dosage: CITRATE FREE
     Route: 058
  3. FOLIC ACID [Concomitant]
     Active Substance: FOLIC ACID
     Indication: Supplementation therapy
  4. METHOTREXATE [Concomitant]
     Active Substance: METHOTREXATE
     Indication: Rheumatoid arthritis
  5. SUMAPEN [Concomitant]
     Indication: Gastrointestinal disorder
  6. LINZESS [Concomitant]
     Active Substance: LINACLOTIDE
     Indication: Gastrointestinal disorder
  7. MONTELUKAST [Concomitant]
     Active Substance: MONTELUKAST SODIUM
     Indication: Hypersensitivity
  8. ALBUTEROL [Concomitant]
     Active Substance: ALBUTEROL
     Indication: COVID-19
     Route: 048
  9. CHRYSANTHEMUM [Concomitant]
     Indication: Product used for unknown indication
  10. PFIZER-BIONTECH COVID-19 VACCINE [Concomitant]
     Active Substance: TOZINAMERAN
     Indication: COVID-19 immunisation
     Dosage: FIRST DOSE
     Route: 030
     Dates: start: 20210601, end: 20210601
  11. PFIZER-BIONTECH COVID-19 VACCINE [Concomitant]
     Active Substance: TOZINAMERAN
     Dosage: SECOND DOSE
     Route: 030
     Dates: start: 20210701, end: 20210701
  12. MODERNA COVID-19 VACCINE [Concomitant]
     Active Substance: ELASOMERAN
     Indication: COVID-19 immunisation
     Dosage: THIRD DOSE (BOOSTER DOSE)
     Route: 030
     Dates: start: 20211224, end: 20211224

REACTIONS (10)
  - Vocal cord polyp [Recovered/Resolved]
  - Liver function test increased [Not Recovered/Not Resolved]
  - Stress [Unknown]
  - Fall [Recovered/Resolved]
  - Blood cholesterol increased [Recovering/Resolving]
  - Post procedural infection [Not Recovered/Not Resolved]
  - Arthralgia [Not Recovered/Not Resolved]
  - Laryngitis [Not Recovered/Not Resolved]
  - Laryngitis [Recovered/Resolved]
  - COVID-19 [Not Recovered/Not Resolved]

NARRATIVE: CASE EVENT DATE: 20201221
